FAERS Safety Report 16479843 (Version 1)
Quarter: 2019Q2

REPORT INFORMATION
  Report Type: Spontaneous
  Country: US (occurrence: US)
  Receive Date: 20190626
  Receipt Date: 20190626
  Transmission Date: 20190711
  Serious: No
  Sender: FDA-Public Use
  Company Number: US-009507513-1906USA007361

PATIENT
  Sex: Female

DRUGS (2)
  1. STEGLATRO [Suspect]
     Active Substance: ERTUGLIFLOZIN PIDOLATE
     Route: 048
  2. JANUVIA [Suspect]
     Active Substance: SITAGLIPTIN PHOSPHATE
     Route: 048

REACTIONS (2)
  - Fungal infection [Unknown]
  - Glucose urine present [Unknown]
